FAERS Safety Report 4851262-8 (Version None)
Quarter: 2005Q4

REPORT INFORMATION
  Report Type: 
  Country: None (occurrence: None)
  Receive Date: 20051208
  Receipt Date: 20051122
  Transmission Date: 20060501
  Serious: Yes (Hospitalization)
  Sender: FDA-Public Use
  Company Number: F03200500172

PATIENT
  Age: 65 Year
  Sex: Male

DRUGS (19)
  1. OXALIPLATIN [Suspect]
     Indication: COLORECTAL CANCER
     Dosage: INTRAVENOUS NOS
     Route: 042
  2. PANITUMUMAB  - SOLUTION [Suspect]
     Indication: COLORECTAL CANCER
     Dosage: 6 MG/KG Q2W INTRAVENOUS NOS
     Route: 042
     Dates: start: 20050620, end: 20050906
  3. FLUOROURACIL [Suspect]
     Indication: COLORECTAL CANCER
     Dosage: INTRAVENOUS NOS
     Route: 042
     Dates: start: 20050906, end: 20050906
  4. BEVACIZUMAB [Concomitant]
  5. FOLINIC ACID [Concomitant]
  6. DIPHENOXYLATE/ATROPINE SULFATE [Concomitant]
  7. PARAGORIC [Concomitant]
  8. METRONIDAZOLE [Concomitant]
  9. HYDROCODONE [Concomitant]
  10. ATORVASTATIN [Concomitant]
  11. ASPIRIN [Concomitant]
  12. PROCHLORPERAZINE [Concomitant]
  13. CLONAZEPAM [Concomitant]
  14. CLINDAMYCIN [Concomitant]
  15. POTASSIUM CHLORIDE [Concomitant]
  16. COLESTYRAMINE [Concomitant]
  17. LOSARTAN [Concomitant]
  18. CELECOXIB [Concomitant]
  19. POTASSIUM [Concomitant]

REACTIONS (6)
  - DEHYDRATION [None]
  - DIARRHOEA [None]
  - ENTEROCOLITIS [None]
  - ILEUS [None]
  - INTESTINAL DILATATION [None]
  - MUCOSAL INFLAMMATION [None]
